FAERS Safety Report 7830029-2 (Version None)
Quarter: 2011Q4

REPORT INFORMATION
  Report Type: 
  Country: None (occurrence: None)
  Receive Date: 20111018
  Receipt Date: 20111010
  Transmission Date: 20120403
  Serious: Yes (Hospitalization, Other)
  Sender: FDA-Public Use
  Company Number: 2011SP003428

PATIENT
  Sex: Male

DRUGS (1)
  1. LUNESTA [Suspect]
     Dosage: 300MG; 30 MG, ORAL
     Route: 048

REACTIONS (4)
  - ALCOHOL USE [None]
  - SUICIDE ATTEMPT [None]
  - MEDICATION ERROR [None]
  - OVERDOSE [None]
